FAERS Safety Report 8758786 (Version 2)
Quarter: 2012Q4

REPORT INFORMATION
  Report Type: Spontaneous
  Country: IT (occurrence: None)
  Receive Date: 20120814
  Receipt Date: 20120917
  Transmission Date: 20130627
  Serious: Yes (Death, Hospitalization, Other)
  Sender: FDA-Public Use
  Company Number: 2011MPI00280

PATIENT
  Age: 20 Year
  Sex: Female
  Weight: 44 kg

DRUGS (3)
  1. BRENTUXIMAB VEDOTIN [Suspect]
     Indication: HODGKIN^S LYMPHOMA
     Route: 042
     Dates: start: 20110624, end: 20110829
  2. BACTRIM (SULFAMETHOXAZOLE, TRIMETHOPRIM) [Concomitant]
  3. CORTISONE ACETATE (CORTISONE ACETATE) [Concomitant]

REACTIONS (16)
  - Aspergillosis [None]
  - Thrombocytopenia [None]
  - Hodgkin^s disease [None]
  - Malignant neoplasm progression [None]
  - Hepatomegaly [None]
  - Nausea [None]
  - Vomiting [None]
  - Bone pain [None]
  - Bone marrow toxicity [None]
  - Decreased appetite [None]
  - Pyrexia [None]
  - Cough [None]
  - Neutrophil count decreased [None]
  - Hepatic lesion [None]
  - No therapeutic response [None]
  - Dyspnoea [None]
